FAERS Safety Report 14134381 (Version 1)
Quarter: 2017Q4

REPORT INFORMATION
  Report Type: Spontaneous
  Country: US (occurrence: US)
  Receive Date: 20171027
  Receipt Date: 20171027
  Transmission Date: 20180321
  Serious: Yes (Other)
  Sender: FDA-Public Use
  Company Number: None

PATIENT
  Age: 59 Year
  Sex: Female
  Weight: 59.85 kg

DRUGS (3)
  1. VYVANSE [Suspect]
     Active Substance: LISDEXAMFETAMINE DIMESYLATE
     Indication: ATTENTION DEFICIT/HYPERACTIVITY DISORDER
     Dosage: ?          QUANTITY:1 CAPSULE(S);?
     Route: 048
  2. METHYLPHENIDATE SHORT-ACTING [Concomitant]
  3. ACTIVELLA (HRT) [Concomitant]

REACTIONS (2)
  - Drug effect incomplete [None]
  - Product physical issue [None]

NARRATIVE: CASE EVENT DATE: 20171026
